FAERS Safety Report 17372594 (Version 1)
Quarter: 2020Q1

REPORT INFORMATION
  Report Type: Spontaneous
  Country: AU (occurrence: AU)
  Receive Date: 20200205
  Receipt Date: 20200205
  Transmission Date: 20200409
  Serious: Yes (Hospitalization)
  Sender: FDA-Public Use
  Company Number: AU-MYLANLABS-2020M1013409

PATIENT
  Sex: Female

DRUGS (20)
  1. RITUXIMAB. [Suspect]
     Active Substance: RITUXIMAB
     Indication: ENCEPHALITIS AUTOIMMUNE
     Dosage: UNK
     Route: 065
  2. CYCLOPHOSPHAMIDE. [Suspect]
     Active Substance: CYCLOPHOSPHAMIDE
     Indication: ENCEPHALITIS AUTOIMMUNE
     Dosage: MONTHLY
     Route: 065
  3. CLOBAZAM. [Suspect]
     Active Substance: CLOBAZAM
     Indication: ENCEPHALITIS AUTOIMMUNE
     Dosage: 1 GRAM
     Route: 065
  4. DIAZEPAM. [Suspect]
     Active Substance: DIAZEPAM
     Indication: DYSKINESIA
  5. CLONIDINE. [Suspect]
     Active Substance: CLONIDINE
     Indication: ENCEPHALITIS AUTOIMMUNE
     Dosage: PLUS BOLUSES
     Route: 065
  6. CLOBAZAM. [Suspect]
     Active Substance: CLOBAZAM
     Indication: DYSKINESIA
  7. LEVETIRACETAM. [Suspect]
     Active Substance: LEVETIRACETAM
     Indication: DYSKINESIA
  8. TRAMADOL. [Suspect]
     Active Substance: TRAMADOL
     Indication: DYSKINESIA
  9. LEVETIRACETAM. [Suspect]
     Active Substance: LEVETIRACETAM
     Indication: ENCEPHALITIS AUTOIMMUNE
     Dosage: 1 GRAM
     Route: 065
  10. RITUXIMAB. [Suspect]
     Active Substance: RITUXIMAB
     Indication: DYSKINESIA
  11. BOTULINUM TOXIN [Suspect]
     Active Substance: BOTULINUM TOXIN NOS
     Indication: ENCEPHALITIS AUTOIMMUNE
     Dosage: UNK
     Route: 030
  12. TRAMADOL. [Suspect]
     Active Substance: TRAMADOL
     Indication: ENCEPHALITIS AUTOIMMUNE
     Dosage: INITIAL DOSE NOT STATED
  13. KETAMINE [Suspect]
     Active Substance: KETAMINE
     Indication: ENCEPHALITIS AUTOIMMUNE
     Dosage: UP TO 20 MG/H PLUS BOLUSES
     Route: 065
  14. KETAMINE [Suspect]
     Active Substance: KETAMINE
     Indication: DYSKINESIA
  15. CYCLOPHOSPHAMIDE. [Suspect]
     Active Substance: CYCLOPHOSPHAMIDE
     Indication: DYSKINESIA
  16. PROPOFOL. [Suspect]
     Active Substance: PROPOFOL
     Indication: ENCEPHALITIS AUTOIMMUNE
     Dosage: {200-300 MG/H PLUS BOLUSES
     Route: 065
  17. DIAZEPAM. [Suspect]
     Active Substance: DIAZEPAM
     Indication: ENCEPHALITIS AUTOIMMUNE
     Dosage: PLUS BOLUSES
     Route: 065
  18. CLONIDINE. [Suspect]
     Active Substance: CLONIDINE
     Indication: DYSKINESIA
  19. PROPOFOL. [Suspect]
     Active Substance: PROPOFOL
     Indication: DYSKINESIA
  20. BOTULINUM TOXIN [Suspect]
     Active Substance: BOTULINUM TOXIN NOS
     Indication: DYSKINESIA

REACTIONS (3)
  - Drug ineffective [Unknown]
  - Rebound effect [Unknown]
  - Dyskinesia [Unknown]
